FAERS Safety Report 4892828-9 (Version None)
Quarter: 2005Q4

REPORT INFORMATION
  Report Type: 
  Country: None (occurrence: None)
  Receive Date: 20051220
  Receipt Date: 20050922
  Transmission Date: 20060501
  Serious: Yes (Other)
  Sender: FDA-Public Use
  Company Number: 418850

PATIENT
  Sex: Female

DRUGS (2)
  1. BONIVA [Suspect]
     Dosage: ORAL
     Route: 048
     Dates: start: 20050615
  2. ASPIRIN [Concomitant]

REACTIONS (1)
  - VASCULAR RUPTURE [None]
